FAERS Safety Report 5122735-8 (Version None)
Quarter: 2006Q4

REPORT INFORMATION
  Report Type: 
  Country: None (occurrence: None)
  Receive Date: 20061005
  Receipt Date: 20061005
  Transmission Date: 20070319
  Serious: No
  Sender: FDA-Public Use
  Company Number: None

PATIENT
  Age: 52 Year
  Sex: Female

DRUGS (1)
  1. ENBREL [Suspect]
     Indication: RHEUMATOID ARTHRITIS
     Dosage: 25 MG TWICE A WEEK SQ
     Route: 058
     Dates: start: 20000607, end: 20061004

REACTIONS (3)
  - DEAFNESS NEUROSENSORY [None]
  - UVEITIS [None]
  - VERTIGO [None]
